FAERS Safety Report 17646866 (Version 4)
Quarter: 2020Q2

REPORT INFORMATION
  Report Type: Spontaneous
  Country: BE (occurrence: BE)
  Receive Date: 20200408
  Receipt Date: 20200520
  Transmission Date: 20200713
  Serious: Yes (Other)
  Sender: FDA-Public Use
  Company Number: BE-PFIZER INC-2020140046

PATIENT
  Age: 17 Year
  Sex: Male

DRUGS (8)
  1. METHOTREXATE SODIUM. [Suspect]
     Active Substance: METHOTREXATE SODIUM
     Indication: T-CELL LYMPHOMA
     Dosage: 5000 MG/M2, CYCLIC (FOUR CYCLES OF INTRAVENOUS (I.V.) 3 COURSES OF 5000 MG/M2)
     Route: 042
  2. 6-METHYLMERCAPTOPURINE [Concomitant]
     Active Substance: MERCAPTOPURINE
     Indication: T-CELL LYMPHOMA
     Dosage: 25 MG/M2, DAILY  (25 MG/M^2/DAY FOR 31 INSTEAD OF 56 DAYS).
     Route: 048
  3. METHOTREXATE SODIUM. [Interacting]
     Active Substance: METHOTREXATE SODIUM
     Dosage: 12 MG, CYCLIC (TRIPLE THERAPY (12 MG MTX)
     Route: 037
  4. CYTARABINE. [Concomitant]
     Active Substance: CYTARABINE
     Indication: T-CELL LYMPHOMA
     Dosage: 30 MG, CYCLIC
     Route: 037
  5. RANITIDINE. [Concomitant]
     Active Substance: RANITIDINE
     Indication: ABDOMINAL PAIN UPPER
     Dosage: UNK
  6. VORICONAZOLE. [Interacting]
     Active Substance: VORICONAZOLE
     Indication: ANTIFUNGAL PROPHYLAXIS
     Dosage: UNK
  7. METHYLPREDNISOLONE. [Concomitant]
     Active Substance: METHYLPREDNISOLONE
     Indication: T-CELL LYMPHOMA
     Dosage: 3 MG, CYCLIC
     Route: 037
  8. LOW MOLECULAR WEIGHT HEPARIN [Concomitant]
     Active Substance: UNSPECIFIED INGREDIENT
     Indication: SUPERIOR SAGITTAL SINUS THROMBOSIS
     Dosage: UNK

REACTIONS (5)
  - Photosensitivity reaction [Recovered/Resolved]
  - Drug interaction [Recovered/Resolved]
  - Nephropathy toxic [Unknown]
  - Drug level increased [Unknown]
  - Cheilitis [Unknown]
